FAERS Safety Report 8838911 (Version 1)
Quarter: 2012Q4

REPORT INFORMATION
  Report Type: Spontaneous
  Country: US (occurrence: None)
  Receive Date: 20121011
  Receipt Date: 20121011
  Transmission Date: 20130627
  Serious: Yes (Other)
  Sender: FDA-Public Use
  Company Number: None

PATIENT
  Age: 53 Year
  Sex: Male

DRUGS (2)
  1. PEGASYS [Suspect]
     Indication: VIRAL HEPATITIS C
     Dates: end: 20120724
  2. RIBAVIRIN [Suspect]
     Route: 048
     Dates: start: 20120724

REACTIONS (1)
  - Hypersensitivity [None]
